FAERS Safety Report 11876886 (Version 1)
Quarter: 2015Q4

REPORT INFORMATION
  Report Type: Report from Study
  Country: US (occurrence: US)
  Receive Date: 20151229
  Receipt Date: 20151229
  Transmission Date: 20160305
  Serious: Yes (Other)
  Sender: FDA-Public Use
  Company Number: US-ASTELLAS-2015US048603

PATIENT

DRUGS (2)
  1. ERLOTINIB [Suspect]
     Active Substance: ERLOTINIB
     Indication: NON-SMALL CELL LUNG CANCER
     Route: 048
  2. ROMIDEPSIN [Suspect]
     Active Substance: ROMIDEPSIN
     Indication: NON-SMALL CELL LUNG CANCER
     Dosage: 8-10MG/M2, UNKNOWN FREQ.
     Route: 042

REACTIONS (1)
  - Anaemia [Unknown]
